FAERS Safety Report 23245202 (Version 1)
Quarter: 2023Q4

REPORT INFORMATION
  Report Type: Spontaneous
  Country: US (occurrence: US)
  Receive Date: 20231130
  Receipt Date: 20231130
  Transmission Date: 20240109
  Serious: No
  Sender: FDA-Public Use
  Company Number: US-ALVOGEN-2022088778

PATIENT
  Sex: Female

DRUGS (1)
  1. TERIPARATIDE [Suspect]
     Active Substance: TERIPARATIDE
     Indication: Product used for unknown indication
     Dosage: S/N# 023882213054?EXP. DATE: FEB-2024?NDC# 47781-652-89?GT IN 00347781652890
     Route: 058

REACTIONS (2)
  - Intentional dose omission [Unknown]
  - Product contamination [Unknown]
